FAERS Safety Report 9217735 (Version 1)
Quarter: 2013Q2

REPORT INFORMATION
  Report Type: Report from Study
  Country: GR (occurrence: GR)
  Receive Date: 20130408
  Receipt Date: 20130408
  Transmission Date: 20140414
  Serious: Yes (Death, Other)
  Sender: FDA-Public Use
  Company Number: GR-PFIZER INC-2013108051

PATIENT
  Age: 69 Year
  Sex: Male

DRUGS (4)
  1. FLUOROURACIL [Suspect]
     Indication: HEAD AND NECK CANCER
  2. CISPLATIN [Concomitant]
  3. LEUCOVORIN [Concomitant]
  4. MITOMYCIN [Concomitant]

REACTIONS (2)
  - Atrioventricular block complete [Fatal]
  - Conduction disorder [Unknown]
